FAERS Safety Report 16959849 (Version 1)
Quarter: 2019Q4

REPORT INFORMATION
  Report Type: Spontaneous
  Country: None (occurrence: CN)
  Receive Date: 20191025
  Receipt Date: 20191025
  Transmission Date: 20200122
  Serious: Yes (Life-Threatening, Hospitalization)
  Sender: FDA-Public Use
  Company Number: CN-JIANGSU HENGRUI MEDICINE CO., LTD.-2076035

PATIENT
  Age: 30 Year
  Sex: Male
  Weight: 60 kg

DRUGS (6)
  1. VINCRISTINE SULFATE. [Suspect]
     Active Substance: VINCRISTINE SULFATE
     Route: 042
     Dates: start: 20190823, end: 20190915
  2. SODIUM CHLORIDE. [Concomitant]
     Active Substance: SODIUM CHLORIDE
     Route: 041
     Dates: start: 20190823, end: 20190915
  3. SODIUM CHLORIDE. [Suspect]
     Active Substance: SODIUM CHLORIDE
     Route: 041
     Dates: start: 20190823, end: 20190915
  4. SODIUM CHLORIDE. [Suspect]
     Active Substance: SODIUM CHLORIDE
     Route: 042
     Dates: start: 20190823, end: 20190915
  5. DAUNORUBICIN HYDROCHLORIDE. [Suspect]
     Active Substance: DAUNORUBICIN HYDROCHLORIDE
     Route: 041
     Dates: start: 20190823, end: 20190915
  6. CYCLOPHOSPHAMIDE FOR INJECTION USP, 500 MG, 1 G AND 2 G PER SINGLE-DOS [Suspect]
     Active Substance: CYCLOPHOSPHAMIDE
     Indication: CHEMOTHERAPY
     Route: 041
     Dates: start: 20190823, end: 20190915

REACTIONS (7)
  - Hyperpyrexia [Recovering/Resolving]
  - Temperature intolerance [Recovering/Resolving]
  - Cytopenia [Recovering/Resolving]
  - Abdominal distension [Recovering/Resolving]
  - Nausea [Recovering/Resolving]
  - Chills [Recovering/Resolving]
  - Vomiting [Recovering/Resolving]

NARRATIVE: CASE EVENT DATE: 20190903
